FAERS Safety Report 6007408-1 (Version None)
Quarter: 2008Q4

REPORT INFORMATION
  Report Type: 
  Country: None (occurrence: None)
  Receive Date: 20081217
  Receipt Date: 20080411
  Transmission Date: 20090506
  Serious: No
  Sender: FDA-Public Use
  Company Number: US-ASTRAZENECA-2008UW07461

PATIENT
  Age: 88 Year
  Sex: Female
  Weight: 57.2 kg

DRUGS (6)
  1. CRESTOR [Suspect]
     Dosage: 4 OR 5 YEARS
     Route: 048
     Dates: end: 20080401
  2. AVAPRO [Concomitant]
  3. ATENOLOL [Concomitant]
  4. NORVASC [Concomitant]
  5. AMBIEN [Concomitant]
     Indication: SLEEP DISORDER
  6. XANAX [Concomitant]

REACTIONS (2)
  - SENSATION OF HEAVINESS [None]
  - WEIGHT DECREASED [None]
